FAERS Safety Report 8342156-4 (Version None)
Quarter: 2012Q2

REPORT INFORMATION
  Report Type: 
  Country: None (occurrence: None)
  Receive Date: 20120507
  Receipt Date: 20120427
  Transmission Date: 20120825
  Serious: Yes (Other)
  Sender: FDA-Public Use
  Company Number: CHPA2012US009251

PATIENT
  Sex: Female

DRUGS (7)
  1. VITAMIN C [Concomitant]
     Dosage: UNK, UNK
  2. FISH OIL [Concomitant]
     Dosage: UNK, UNK
  3. BENADRYL ^WARNER-LAMBERT^               /USA/ [Concomitant]
     Dosage: UNK, UNK
  4. BENEFIBER W/ WHEAT DEXTRIN [Suspect]
     Dosage: 3 TSP, QD
     Route: 048
     Dates: start: 20111101, end: 20120409
  5. AMLODIPINE [Concomitant]
     Dosage: UNK, UNK
  6. MULTI-VITAMINS [Concomitant]
     Dosage: UNK, UNK
  7. ANTARA (MICRONIZED) [Concomitant]
     Dosage: UNK, UNK

REACTIONS (6)
  - METAPLASIA [None]
  - DYSPHAGIA [None]
  - BARRETT'S OESOPHAGUS [None]
  - NAUSEA [None]
  - OBSTRUCTION GASTRIC [None]
  - VOMITING [None]
